FAERS Safety Report 4508587-5 (Version None)
Quarter: 2004Q4

REPORT INFORMATION
  Report Type: 
  Country: None (occurrence: None)
  Receive Date: 20041123
  Receipt Date: 20040413
  Transmission Date: 20050328
  Serious: No
  Sender: FDA-Public Use
  Company Number: US-GLAXOSMITHKLINE-A0506966A

PATIENT
  Age: 39 Year
  Sex: Male

DRUGS (2)
  1. WELLBUTRIN SR [Suspect]
     Indication: DEPRESSION
     Dosage: 100MG PER DAY
     Route: 048
  2. CONCERTA [Concomitant]

REACTIONS (4)
  - DRUG INEFFECTIVE [None]
  - NASOPHARYNGITIS [None]
  - NAUSEA [None]
  - SKIN WRINKLING [None]
